FAERS Safety Report 25575798 (Version 2)
Quarter: 2025Q3

REPORT INFORMATION
  Report Type: Spontaneous
  Country: EU (occurrence: EU)
  Receive Date: 20250718
  Receipt Date: 20250731
  Transmission Date: 20251021
  Serious: Yes (Other)
  Sender: UCB
  Company Number: EU-UCBSA-2025044048

PATIENT
  Age: 50 Year
  Sex: Female

DRUGS (3)
  1. BRIVIACT [Suspect]
     Active Substance: BRIVARACETAM
     Indication: Epilepsy
     Dosage: 100 MILLIGRAM, 2X/DAY (BID)
  2. LAMOTRIGINE [Suspect]
     Active Substance: LAMOTRIGINE
     Indication: Product used for unknown indication
     Dosage: 300 MILLIGRAM, 2X/DAY (BID)
  3. LAMOTRIGINE [Suspect]
     Active Substance: LAMOTRIGINE

REACTIONS (6)
  - Seizure [Not Recovered/Not Resolved]
  - Road traffic accident [Not Recovered/Not Resolved]
  - Mood swings [Not Recovered/Not Resolved]
  - Menstruation irregular [Not Recovered/Not Resolved]
  - Stress [Not Recovered/Not Resolved]
  - Sleep deficit [Not Recovered/Not Resolved]

NARRATIVE: CASE EVENT DATE: 20250101
